FAERS Safety Report 9342662 (Version 1)
Quarter: 2013Q2

REPORT INFORMATION
  Report Type: Spontaneous
  Country: FR (occurrence: FR)
  Receive Date: 20130611
  Receipt Date: 20130611
  Transmission Date: 20140414
  Serious: Yes (Hospitalization, Other)
  Sender: FDA-Public Use
  Company Number: FR-TEVA-410500ISR

PATIENT
  Age: 34 Year
  Sex: Female

DRUGS (7)
  1. LEELOO [Suspect]
     Indication: CONTRACEPTION
     Dosage: LEVONORGESTREL 0.1 MG, ETHINYLESTRADIOL 0.02 MG
     Route: 048
     Dates: start: 2011, end: 20120725
  2. DYCYNONE [Concomitant]
     Indication: MENOMETRORRHAGIA
     Route: 048
     Dates: start: 2012, end: 2012
  3. CYMBALTA [Concomitant]
     Indication: DEPRESSION
     Route: 048
     Dates: end: 201207
  4. PRETERAX [Concomitant]
     Indication: HYPERTENSION
     Route: 048
  5. AERIUS [Concomitant]
     Indication: ASTHMA
     Route: 048
  6. SINGULAIR [Concomitant]
     Indication: ASTHMA
     Dosage: LONG-TERM TREATMENT
     Route: 048
  7. PREVISCAN [Concomitant]
     Dosage: 1 TABLET DAILY; ON EVENING

REACTIONS (7)
  - Cerebral venous thrombosis [Recovered/Resolved with Sequelae]
  - Convulsion [Unknown]
  - Paraparesis [Unknown]
  - Headache [Unknown]
  - Nausea [Unknown]
  - Paraesthesia [Unknown]
  - Dysgraphia [Recovering/Resolving]
